FAERS Safety Report 6624031-6 (Version None)
Quarter: 2010Q1

REPORT INFORMATION
  Report Type: 
  Country: None (occurrence: None)
  Receive Date: 20100310
  Receipt Date: 20100305
  Transmission Date: 20100710
  Serious: Yes (Hospitalization)
  Sender: FDA-Public Use
  Company Number: PHHY2010AU13238

PATIENT
  Sex: Female

DRUGS (12)
  1. STALEVO 100 [Suspect]
     Indication: PARKINSON'S DISEASE
     Dosage: 100/25/200 5XDAY
     Route: 048
  2. STALEVO 100 [Interacting]
     Dosage: UNK
     Dates: start: 20100226
  3. WARFARIN SODIUM [Interacting]
     Indication: PULMONARY EMBOLISM
     Dosage: UNK
     Dates: start: 20100218
  4. MIRTAZAPINE [Interacting]
     Indication: DEPRESSION
     Dosage: 15 MG, AT NIGHT
  5. MIRTAZAPINE [Interacting]
     Dosage: UNK
     Dates: start: 20100224
  6. AMANTADINE HCL [Concomitant]
     Indication: PARKINSON'S DISEASE
     Dosage: 100 MG, BID
  7. SINEMET CR [Concomitant]
     Indication: PARKINSON'S DISEASE
     Dosage: 25/100 MG, NOCTURNAL
  8. DIAZEPAM [Concomitant]
     Indication: ANXIETY
     Dosage: 02 MG, NOCT
  9. MULTI-VITAMIN [Concomitant]
     Dosage: DAILY, UNK
  10. NORETHISTERONE [Concomitant]
     Dosage: 05 MG, UNK
  11. OMEPRAZOLE [Concomitant]
     Dosage: 20 MG, UNK
  12. PRAMIPEXOLE DIHYDROCHLORIDE [Concomitant]
     Dosage: 500 MCG, TDS

REACTIONS (2)
  - DRUG INTERACTION [None]
  - INTERNATIONAL NORMALISED RATIO INCREASED [None]
